FAERS Safety Report 7798975-6 (Version None)
Quarter: 2011Q4

REPORT INFORMATION
  Report Type: 
  Country: None (occurrence: None)
  Receive Date: 20111006
  Receipt Date: 20110928
  Transmission Date: 20120403
  Serious: Yes (Other)
  Sender: FDA-Public Use
  Company Number: JP-ASTELLAS-2011JP006621

PATIENT
  Age: 76 Year
  Sex: Male

DRUGS (2)
  1. FUNGUARD [Suspect]
     Dosage: 100 MG, UNKNOWN/D
     Route: 041
     Dates: start: 20110831
  2. INSULIN [Concomitant]
     Route: 065

REACTIONS (9)
  - HYPERHIDROSIS [None]
  - BLOOD PRESSURE DECREASED [None]
  - C-REACTIVE PROTEIN ABNORMAL [None]
  - POLYURIA [None]
  - BLOOD BETA-D-GLUCAN INCREASED [None]
  - FEELING COLD [None]
  - BRADYPHRENIA [None]
  - GENERAL PHYSICAL HEALTH DETERIORATION [None]
  - RHINORRHOEA [None]
